FAERS Safety Report 8598006-4 (Version None)
Quarter: 2012Q3

REPORT INFORMATION
  Report Type: 
  Country: None (occurrence: None)
  Receive Date: 20120816
  Receipt Date: 20120807
  Transmission Date: 20120928
  Serious: Yes (Life-Threatening, Hospitalization, Other)
  Sender: FDA-Public Use
  Company Number: JP-BRISTOL-MYERS SQUIBB COMPANY-16455560

PATIENT
  Age: 41 Year
  Sex: Male
  Weight: 68 kg

DRUGS (6)
  1. PREDNISOLONE [Concomitant]
     Route: 048
  2. METHOTREXATE [Concomitant]
     Route: 048
  3. FOLIC ACID [Concomitant]
     Route: 048
  4. RABEPRAZOLE SODIUM [Concomitant]
     Route: 048
  5. CELECOXIB [Concomitant]
     Route: 048
  6. ORENCIA [Suspect]
     Indication: RHEUMATOID ARTHRITIS
     Dosage: INF 9
     Route: 041
     Dates: start: 20110722, end: 20120224

REACTIONS (2)
  - BLOOD PRESSURE INCREASED [None]
  - AORTIC DISSECTION [None]
